FAERS Safety Report 7509593-9 (Version None)
Quarter: 2011Q2

REPORT INFORMATION
  Report Type: 
  Country: None (occurrence: None)
  Receive Date: 20110527
  Receipt Date: 20110518
  Transmission Date: 20111010
  Serious: Yes (Hospitalization)
  Sender: FDA-Public Use
  Company Number: IT-BAYER-2011-042166

PATIENT
  Age: 14 Year
  Sex: Female

DRUGS (2)
  1. PEG-INTRON [Concomitant]
     Indication: RENAL CELL CARCINOMA
     Dosage: 1.5 MG/KG, OW
     Route: 058
  2. NEXAVAR [Suspect]
     Indication: RENAL CELL CARCINOMA
     Dosage: 200 MG, BID
     Route: 048

REACTIONS (4)
  - GINGIVAL BLEEDING [None]
  - RASH [None]
  - ALOPECIA [None]
  - HERPES SIMPLEX [None]
